FAERS Safety Report 23209341 (Version 2)
Quarter: 2024Q1

REPORT INFORMATION
  Report Type: Report from Study
  Country: US (occurrence: US)
  Receive Date: 20231121
  Receipt Date: 20240205
  Transmission Date: 20240410
  Serious: Yes (Death, Other)
  Sender: FDA-Public Use
  Company Number: US-ACADIA PHARMACEUTICALS INC.-ACA-2023-PIM-005220

PATIENT
  Sex: Male

DRUGS (1)
  1. NUPLAZID [Suspect]
     Active Substance: PIMAVANSERIN TARTRATE
     Indication: Parkinson^s disease
     Dosage: 34 MILLIGRAM, QD
     Route: 048
     Dates: start: 20230104, end: 202309

REACTIONS (7)
  - Sepsis [Recovered/Resolved]
  - Cervical vertebral fracture [Recovered/Resolved]
  - Pseudomonas infection [Recovered/Resolved]
  - Staphylococcal infection [Recovered/Resolved]
  - Respiratory failure [Recovered/Resolved]
  - COVID-19 [Recovered/Resolved]
  - Anaemia [Recovered/Resolved]
